FAERS Safety Report 7870659-5 (Version None)
Quarter: 2011Q4

REPORT INFORMATION
  Report Type: 
  Country: None (occurrence: None)
  Receive Date: 20111029
  Receipt Date: 20110221
  Transmission Date: 20120403
  Serious: No
  Sender: FDA-Public Use
  Company Number: US-AMGEN-USASP2011009152

PATIENT
  Age: 69 Year
  Sex: Female

DRUGS (3)
  1. ENBREL [Suspect]
     Indication: PSORIASIS
     Dosage: 50 MG, QWK
     Dates: start: 20110204
  2. ENBREL [Suspect]
     Indication: RHEUMATOID ARTHRITIS
  3. ENBREL [Suspect]
     Indication: PSORIATIC ARTHROPATHY
     Dosage: UNK

REACTIONS (9)
  - SJOGREN'S SYNDROME [None]
  - ARTHRALGIA [None]
  - EYE IRRITATION [None]
  - HYPERSENSITIVITY [None]
  - FATIGUE [None]
  - NAUSEA [None]
  - HEADACHE [None]
  - INJECTION SITE PAIN [None]
  - RASH [None]
